FAERS Safety Report 11884370 (Version 2)
Quarter: 2016Q1

REPORT INFORMATION
  Report Type: Report from Study
  Country: FR (occurrence: FR)
  Receive Date: 20160103
  Receipt Date: 20160125
  Transmission Date: 20160526
  Serious: Yes (Other)
  Sender: FDA-Public Use
  Company Number: PHHY2015FR168982

PATIENT
  Age: 54 Year
  Sex: Female

DRUGS (3)
  1. SERTRALINE [Concomitant]
     Active Substance: SERTRALINE HYDROCHLORIDE
     Indication: DEPRESSION
     Dosage: 50 OT, UNK
     Route: 065
     Dates: start: 2011
  2. AFINITOR [Suspect]
     Active Substance: EVEROLIMUS
     Indication: BREAST CANCER
     Dosage: 10 MG, UNK
     Route: 048
     Dates: start: 20150626, end: 20151102
  3. AROMASINE [Concomitant]
     Active Substance: EXEMESTANE
     Indication: BONE DISORDER
     Dosage: UNK
     Route: 065
     Dates: start: 201510

REACTIONS (15)
  - Carbohydrate antigen 15-3 increased [Unknown]
  - Cough [Recovered/Resolved]
  - Bronchial metaplasia [Unknown]
  - Dyspnoea [Recovered/Resolved]
  - Chest X-ray abnormal [Unknown]
  - Crepitations [Unknown]
  - Malaise [Unknown]
  - Lymphangiosis carcinomatosa [Unknown]
  - Lung infiltration [Recovering/Resolving]
  - Asthenia [Unknown]
  - Lung disorder [Unknown]
  - Mucosal inflammation [Recovered/Resolved]
  - Wheezing [Unknown]
  - Fatigue [Unknown]
  - Arthralgia [Unknown]

NARRATIVE: CASE EVENT DATE: 20150924
